FAERS Safety Report 5961251-8 (Version None)
Quarter: 2008Q4

REPORT INFORMATION
  Report Type: 
  Country: None (occurrence: None)
  Receive Date: 20081119
  Receipt Date: 20081105
  Transmission Date: 20090506
  Serious: Yes (Other)
  Sender: FDA-Public Use
  Company Number: FON_00015_2008

PATIENT
  Sex: Male

DRUGS (11)
  1. ROCALTROL [Suspect]
     Indication: DRUG USE FOR UNKNOWN INDICATION
     Dosage: (0.5 PG, ORAL)
     Route: 048
     Dates: start: 20080728, end: 20080806
  2. MYCOSTATIN [Suspect]
     Indication: DEMENTIA ALZHEIMER'S TYPE
     Dosage: (100000 IU TID ORAL)
     Route: 048
     Dates: start: 20080727, end: 20080806
  3. ARICEPT [Suspect]
     Indication: DEMENTIA ALZHEIMER'S TYPE
     Dosage: (5 MG QD ORAL)
     Route: 048
     Dates: start: 20080726, end: 20080806
  4. FOSAMAX [Suspect]
     Indication: DRUG USE FOR UNKNOWN INDICATION
     Dosage: (70 MG  1X/WEEK OCCLUSIVE DRESSING TECHNIQUE)
     Dates: start: 20080726, end: 20080806
  5. NEURONTIN [Suspect]
     Indication: AGITATION
     Dosage: (100 MG BID ORAL)
     Route: 048
     Dates: start: 20080720
  6. NEURONTIN [Suspect]
     Indication: RESTLESSNESS
     Dosage: (100 MG BID ORAL)
     Route: 048
     Dates: start: 20080720
  7. AUGMENTIN '200' [Suspect]
     Indication: BRONCHOPNEUMONIA
     Dosage: (1200 MG  TID INTRAVENOUS DRIP)
     Route: 041
     Dates: start: 20080806, end: 20080807
  8. EFFEXOR [Concomitant]
  9. MORPHINE SULFATE [Concomitant]
  10. TRUSOPT [Concomitant]
  11. TIMOPTIC [Concomitant]

REACTIONS (5)
  - ASPIRATION [None]
  - BACK PAIN [None]
  - BRONCHOPNEUMONIA [None]
  - ERYTHEMA MULTIFORME [None]
  - NECROSIS [None]
